FAERS Safety Report 24315833 (Version 1)
Quarter: 2024Q3

REPORT INFORMATION
  Report Type: Report from Study
  Country: CH (occurrence: CH)
  Receive Date: 20240913
  Receipt Date: 20240913
  Transmission Date: 20241017
  Serious: Yes (Death, Other)
  Sender: RANBAXY
  Company Number: CH-SUN PHARMACEUTICAL INDUSTRIES LTD-2024R1-467536

PATIENT
  Age: 75 Year
  Sex: Female

DRUGS (2)
  1. AMPHOTERICIN B [Suspect]
     Active Substance: AMPHOTERICIN B
     Indication: Rhinocerebral mucormycosis
     Dosage: 10 MILLIGRAM/KILOGRAM, DAILY
     Route: 065
  2. POSACONAZOLE [Suspect]
     Active Substance: POSACONAZOLE
     Indication: Rhinocerebral mucormycosis
     Dosage: UNK (5 X 100 MG)
     Route: 065

REACTIONS (4)
  - Disease progression [Fatal]
  - Urosepsis [Fatal]
  - Anaemia [Fatal]
  - Metabolic acidosis [Fatal]
